FAERS Safety Report 24336958 (Version 1)
Quarter: 2024Q3

REPORT INFORMATION
  Report Type: Spontaneous
  Country: EG (occurrence: EG)
  Receive Date: 20240919
  Receipt Date: 20240919
  Transmission Date: 20241016
  Serious: Yes (Other)
  Sender: HIKMA
  Company Number: EG-HIKMA PHARMACEUTICALS USA INC.-EG-H14001-24-08483

PATIENT
  Age: 59 Year
  Sex: Female

DRUGS (5)
  1. PACLITAXEL [Suspect]
     Active Substance: PACLITAXEL
     Indication: Breast cancer
     Dosage: 135 MILLIGRAM
     Route: 065
     Dates: start: 20240325
  2. PACLITAXEL [Suspect]
     Active Substance: PACLITAXEL
     Dosage: 135 MILLIGRAM (11TH DOSE)
     Route: 065
     Dates: start: 20240713
  3. PHENIRAMINE MALEATE [Concomitant]
     Active Substance: PHENIRAMINE MALEATE
     Indication: Chemotherapy side effect prophylaxis
     Dosage: UNK
     Route: 065
  4. ONDANSETRON HYDROCHLORIDE [Concomitant]
     Active Substance: ONDANSETRON HYDROCHLORIDE
     Indication: Chemotherapy side effect prophylaxis
     Dosage: UNK
     Route: 065
  5. PROTOFIX [Concomitant]
     Indication: Chemotherapy side effect prophylaxis
     Dosage: UNK
     Route: 065

REACTIONS (1)
  - Cough [Unknown]

NARRATIVE: CASE EVENT DATE: 20240713
